FAERS Safety Report 11198312 (Version 1)
Quarter: 2015Q2

REPORT INFORMATION
  Report Type: Not Available
  Country: IN (occurrence: IN)
  Receive Date: 20150618
  Receipt Date: 20150618
  Transmission Date: 20150821
  Serious: Yes (Hospitalization, Other)
  Sender: FDA-Public Use
  Company Number: IN-LUPIN PHARMACEUTICALS INC.-E2B_00003687

PATIENT
  Age: 27 Year
  Sex: Male

DRUGS (7)
  1. SOLONEX [Suspect]
     Active Substance: ISONIAZID
     Indication: LYMPH NODE TUBERCULOSIS
     Route: 065
     Dates: start: 20150217, end: 20150317
  2. R-CIN 600 [Suspect]
     Active Substance: RIFAMPIN
     Indication: LYMPH NODE TUBERCULOSIS
     Route: 048
     Dates: start: 20150217, end: 20150317
  3. R-CIN [Suspect]
     Active Substance: RIFAMPIN
     Indication: LYMPH NODE TUBERCULOSIS
     Route: 048
     Dates: start: 20150416, end: 20150418
  4. LIVERIL FORTE [Concomitant]
     Indication: PRODUCT USED FOR UNKNOWN INDICATION
     Route: 048
  5. COMBUTOL [Suspect]
     Active Substance: ETHAMBUTOL HYDROCHLORIDE
     Indication: LYMPH NODE TUBERCULOSIS
     Route: 048
     Dates: start: 20150420
  6. LOXOF 500 [Concomitant]
     Indication: LYMPH NODE TUBERCULOSIS
     Route: 048
     Dates: start: 20150425
  7. AMBISTRYN-S [Concomitant]
     Indication: LYMPH NODE TUBERCULOSIS
     Dosage: ONCE A DAY (6 TIMES PER WEEK)
     Route: 030
     Dates: start: 20150509

REACTIONS (5)
  - Drug-induced liver injury [Recovering/Resolving]
  - Pyrexia [Recovered/Resolved]
  - Rash [Recovering/Resolving]
  - Nausea [Recovered/Resolved]
  - Vomiting [Recovered/Resolved]

NARRATIVE: CASE EVENT DATE: 201503
